FAERS Safety Report 5669745-X (Version None)
Quarter: 2008Q1

REPORT INFORMATION
  Report Type: 
  Country: None (occurrence: None)
  Receive Date: 20080317
  Receipt Date: 20080312
  Transmission Date: 20080703
  Serious: Yes (Hospitalization)
  Sender: FDA-Public Use
  Company Number: JP-ASTRAZENECA-2008AP01882

PATIENT
  Age: 63 Year
  Sex: Male

DRUGS (2)
  1. TENORMIN [Suspect]
     Indication: HYPERTENSION
     Dosage: DOSE UNKNOWN
     Route: 048
  2. PLETAL [Suspect]
     Dosage: DOSE UNKNOWN
     Route: 048

REACTIONS (4)
  - ASTHENIA [None]
  - BLOOD CREATINE PHOSPHOKINASE INCREASED [None]
  - MUSCULAR WEAKNESS [None]
  - POLLAKIURIA [None]
